FAERS Safety Report 7351007-6 (Version None)
Quarter: 2011Q1

REPORT INFORMATION
  Report Type: 
  Country: None (occurrence: None)
  Receive Date: 20110314
  Receipt Date: 20110228
  Transmission Date: 20110831
  Serious: Yes (Hospitalization, Other)
  Sender: FDA-Public Use
  Company Number: PHHY2011CN17608

PATIENT
  Age: 18 Year
  Sex: Female

DRUGS (10)
  1. CICLOSPORIN [Interacting]
     Dosage: 75 MG ONCE EVERY 12 HOURS
  2. VORICONAZOLE [Interacting]
     Dosage: 200 MG, ONCE EVERY 12 HOURS
     Route: 048
  3. CLOPIDOGREL [Concomitant]
     Dosage: UNK
  4. CICLOSPORIN [Suspect]
     Indication: GRAFT VERSUS HOST DISEASE
     Dosage: 100 MG ONCE EVERY TWELVE HOURS
     Route: 048
  5. ROTUNDINE [Concomitant]
     Dosage: UNK
  6. DIAZEPAM [Concomitant]
     Dosage: 10 MG
     Route: 030
  7. CEFACLOR [Concomitant]
     Dosage: UNK
  8. METHYLPREDNISOLONE [Concomitant]
     Indication: GRAFT VERSUS HOST DISEASE
     Dosage: 8MG ONCE EVERY 12 HOURS
  9. CITICOLINE [Concomitant]
     Dosage: 0.75 GM
     Route: 041
  10. MYCOPHENOLATE MOFETIL [Concomitant]
     Indication: GRAFT VERSUS HOST DISEASE
     Dosage: 1G ONCE EVERY 12 HOURS

REACTIONS (17)
  - HEADACHE [None]
  - DIZZINESS [None]
  - MUSCULOSKELETAL DISCOMFORT [None]
  - COUGH [None]
  - OCCULT BLOOD [None]
  - FUNGAL INFECTION [None]
  - LOWER RESPIRATORY TRACT INFLAMMATION [None]
  - IMMUNOSUPPRESSANT DRUG LEVEL INCREASED [None]
  - EPILEPSY [None]
  - TRISMUS [None]
  - LUNG INFECTION [None]
  - CONVULSION [None]
  - VISION BLURRED [None]
  - CSF GLUCOSE INCREASED [None]
  - DRUG INTERACTION [None]
  - CEREBRAL INFARCTION [None]
  - PRODUCTIVE COUGH [None]
